FAERS Safety Report 4884132-X (Version None)
Quarter: 2005Q4

REPORT INFORMATION
  Report Type: 
  Country: None (occurrence: None)
  Receive Date: 20051201
  Receipt Date: 20050910
  Transmission Date: 20060501
  Serious: No
  Sender: FDA-Public Use
  Company Number: 2005PV001988

PATIENT
  Age: 62 Year
  Sex: Female
  Weight: 85.7298 kg

DRUGS (1)
  1. BYETTA [Suspect]
     Indication: DIABETES MELLITUS NON-INSULIN-DEPENDENT
     Dosage: 5 MCG; BID; SC
     Route: 058
     Dates: start: 20050909, end: 20050910

REACTIONS (6)
  - FEELING JITTERY [None]
  - HYPERSENSITIVITY [None]
  - PRURITUS [None]
  - RASH PRURITIC [None]
  - RASH VESICULAR [None]
  - URTICARIA [None]
